FAERS Safety Report 17052293 (Version 1)
Quarter: 2019Q4

REPORT INFORMATION
  Report Type: Spontaneous
  Country: CN (occurrence: CN)
  Receive Date: 20191120
  Receipt Date: 20191120
  Transmission Date: 20200122
  Serious: Yes (Hospitalization)
  Sender: FDA-Public Use
  Company Number: CN-ASTELLAS-2019US045899

PATIENT
  Age: 35 Year
  Sex: Male
  Weight: 60 kg

DRUGS (2)
  1. MYFORTIC [Concomitant]
     Active Substance: MYCOPHENOLATE SODIUM
     Indication: PRODUCT USED FOR UNKNOWN INDICATION
     Dosage: UNK UNK, UNKNOWN FREQ.
     Route: 065
     Dates: start: 20191024
  2. PROGRAF [Suspect]
     Active Substance: TACROLIMUS
     Indication: PRODUCT USED FOR UNKNOWN INDICATION
     Dosage: UNK, UNKNOWN FREQ.
     Route: 048
     Dates: start: 20191024

REACTIONS (2)
  - Blood creatinine abnormal [Not Recovered/Not Resolved]
  - Immunosuppressant drug level decreased [Not Recovered/Not Resolved]

NARRATIVE: CASE EVENT DATE: 20191114
